FAERS Safety Report 5765107-5 (Version None)
Quarter: 2008Q2

REPORT INFORMATION
  Report Type: 
  Country: None (occurrence: None)
  Receive Date: 20080602
  Receipt Date: 20071005
  Transmission Date: 20081010
  Serious: Yes (Disabling)
  Sender: FDA-Public Use
  Company Number: 2007PV000040

PATIENT
  Sex: Female

DRUGS (1)
  1. DEPOCYT [Suspect]
     Indication: LEUKAEMIA

REACTIONS (1)
  - BLINDNESS [None]
